FAERS Safety Report 21287038 (Version 3)
Quarter: 2022Q4

REPORT INFORMATION
  Report Type: Report from Study
  Country: DE (occurrence: DE)
  Receive Date: 20220902
  Receipt Date: 20221021
  Transmission Date: 20230112
  Serious: Yes (Hospitalization, Other)
  Sender: FDA-Public Use
  Company Number: DE-NOVARTISPH-PHHY2018DE078251

PATIENT
  Sex: Female

DRUGS (12)
  1. UNSPECIFIED INGREDIENT [Suspect]
     Active Substance: UNSPECIFIED INGREDIENT
     Indication: Product used for unknown indication
     Dosage: UNK
     Route: 065
  2. METHOTREXATE [Suspect]
     Active Substance: METHOTREXATE
     Indication: Rheumatoid arthritis
     Dosage: UNK
     Route: 065
  3. METHOTREXATE [Suspect]
     Active Substance: METHOTREXATE
     Dosage: 5 MG
     Route: 065
     Dates: start: 20160111
  4. METHOTREXATE [Suspect]
     Active Substance: METHOTREXATE
     Dosage: 5 MG
     Route: 065
     Dates: start: 20160304
  5. METHOTREXATE [Suspect]
     Active Substance: METHOTREXATE
     Dosage: 5 MG
     Route: 065
     Dates: start: 20160708
  6. METHOTREXATE [Suspect]
     Active Substance: METHOTREXATE
     Dosage: 7.5 MG
     Route: 065
     Dates: start: 20170120
  7. METHOTREXATE [Suspect]
     Active Substance: METHOTREXATE
     Dosage: 7.5 MG
     Route: 065
     Dates: start: 20170710
  8. METHOTREXATE [Suspect]
     Active Substance: METHOTREXATE
     Dosage: 7.5 MG
     Route: 065
     Dates: start: 20180117
  9. METHOTREXATE [Suspect]
     Active Substance: METHOTREXATE
     Dosage: 5 MG (BEFORE 11 JAN 2016, STOP BETWEEN 08 JUN 2016 TO 20 JAN 2017)
     Route: 065
  10. METHOTREXATE [Suspect]
     Active Substance: METHOTREXATE
     Dosage: 7.5 MG (START BETWEEN 08 JUL 2016 TO 20 JAN 2017, STOP BETWEEN 17 JAN 2018 TO 17 JUL 2018)
     Route: 065
  11. SIMPONI [Suspect]
     Active Substance: GOLIMUMAB
     Indication: Rheumatoid arthritis
     Dosage: 50 MG
     Route: 065
     Dates: start: 201601, end: 201603
  12. ETANERCEPT [Suspect]
     Active Substance: ETANERCEPT
     Indication: Rheumatoid arthritis
     Dosage: 50 MG
     Route: 065
     Dates: start: 201810, end: 201904

REACTIONS (12)
  - Pelvic floor muscle weakness [Not Recovered/Not Resolved]
  - Intervertebral disc protrusion [Recovered/Resolved]
  - Basal cell carcinoma [Unknown]
  - Cataract [Unknown]
  - Gastrointestinal infection [Unknown]
  - Urinary tract infection [Unknown]
  - Alopecia [Unknown]
  - Nausea [Unknown]
  - Hypertension [Unknown]
  - Intervertebral disc protrusion [Unknown]
  - Anal incontinence [Unknown]
  - Bronchitis [Recovered/Resolved]

NARRATIVE: CASE EVENT DATE: 20170207
